FAERS Safety Report 9271180 (Version 1)
Quarter: 2013Q2

REPORT INFORMATION
  Report Type: Spontaneous
  Country: BR (occurrence: BR)
  Receive Date: 20130506
  Receipt Date: 20130506
  Transmission Date: 20140414
  Serious: Yes (Other)
  Sender: FDA-Public Use
  Company Number: BR-ROXANE LABORATORIES, INC.-2013-RO-00663RO

PATIENT
  Age: 8 Year
  Sex: Male

DRUGS (1)
  1. IMIPRAMINE PAMOATE [Suspect]
     Indication: MAJOR DEPRESSION
     Dosage: 25 MG

REACTIONS (1)
  - Dystonia [Recovered/Resolved]
